FAERS Safety Report 4534164-6 (Version None)
Quarter: 2004Q4

REPORT INFORMATION
  Report Type: 
  Country: None (occurrence: None)
  Receive Date: 20041213
  Receipt Date: 20040708
  Transmission Date: 20050328
  Serious: Yes (Other)
  Sender: FDA-Public Use
  Company Number: 373679

PATIENT
  Age: 77 Year
  Sex: Male

DRUGS (5)
  1. TICLID [Suspect]
     Indication: DRUG USE FOR UNKNOWN INDICATION
  2. PLAVIX [Suspect]
     Indication: DRUG USE FOR UNKNOWN INDICATION
     Dosage: 75 MG DAILY ORAL
     Route: 048
  3. TNKASE [Suspect]
     Indication: DRUG USE FOR UNKNOWN INDICATION
  4. HEPARIN SODIUM [Suspect]
     Indication: DRUG USE FOR UNKNOWN INDICATION
  5. ASPIRIN [Suspect]
     Indication: DRUG USE FOR UNKNOWN INDICATION

REACTIONS (3)
  - HAEMATOMA [None]
  - HAEMORRHAGE CORONARY ARTERY [None]
  - POST PROCEDURAL HAEMORRHAGE [None]
